FAERS Safety Report 16357813 (Version 6)
Quarter: 2019Q3

REPORT INFORMATION
  Report Type: Spontaneous
  Country: US (occurrence: US)
  Receive Date: 20190527
  Receipt Date: 20190903
  Transmission Date: 20191004
  Serious: Yes (Death, Other)
  Sender: FDA-Public Use
  Company Number: US-BIOVITRUM-2019US1129

PATIENT
  Age: 21 Year
  Sex: Female
  Weight: 55 kg

DRUGS (1)
  1. GAMIFANT [Suspect]
     Active Substance: EMAPALUMAB-LZSG
     Indication: HAEMOPHAGOCYTIC LYMPHOHISTIOCYTOSIS
     Route: 042
     Dates: start: 201904

REACTIONS (5)
  - Pulmonary oedema [Not Recovered/Not Resolved]
  - Haemorrhagic stroke [Fatal]
  - Multiple organ dysfunction syndrome [Fatal]
  - Seizure [Not Recovered/Not Resolved]
  - T-cell lymphoma [Unknown]
